FAERS Safety Report 7683375-X (Version None)
Quarter: 2011Q3

REPORT INFORMATION
  Report Type: 
  Country: None (occurrence: None)
  Receive Date: 20110815
  Receipt Date: 20110811
  Transmission Date: 20111222
  Serious: Yes (Other)
  Sender: FDA-Public Use
  Company Number: US-BAYER-2011-071676

PATIENT
  Age: 71 Year
  Sex: Male

DRUGS (3)
  1. CARVEDILOL [Concomitant]
     Indication: HYPERTENSION
     Dosage: 1 DF, BID
  2. NEXAVAR [Suspect]
     Indication: RENAL CANCER
     Dosage: DAILY DOSE 800 MG
     Dates: start: 20110501
  3. NEXAVAR [Suspect]
     Indication: METASTASES TO BONE

REACTIONS (5)
  - BLOOD PRESSURE FLUCTUATION [None]
  - TINNITUS [None]
  - ERYTHEMA [None]
  - HOT FLUSH [None]
  - RASH [None]
